FAERS Safety Report 10679494 (Version 1)
Quarter: 2014Q4

REPORT INFORMATION
  Report Type: Spontaneous
  Country: US (occurrence: US)
  Receive Date: 20141229
  Receipt Date: 20141229
  Transmission Date: 20150529
  Serious: No
  Sender: FDA-Public Use
  Company Number: US-ABBVIE-14P-163-1266037-00

PATIENT
  Age: 81 Year
  Sex: Male
  Weight: 81.72 kg

DRUGS (3)
  1. RADIATION THERAPY [Concomitant]
     Active Substance: RADIATION THERAPY
     Indication: PROSTATE CANCER
     Dosage: FOLLOWING INJECTION
     Dates: start: 201310, end: 201311
  2. AMBIEN [Concomitant]
     Active Substance: ZOLPIDEM TARTRATE
     Indication: INSOMNIA
     Dosage: PRN
  3. LUPRON DEPOT [Suspect]
     Active Substance: LEUPROLIDE ACETATE
     Indication: PROSTATE CANCER
     Dosage: UPPER LEFT LEG/HIP AREA
     Route: 030
     Dates: start: 201310, end: 201310

REACTIONS (6)
  - Blister [Recovered/Resolved]
  - Skin lesion [Recovered/Resolved]
  - Scar [Not Recovered/Not Resolved]
  - Pruritus [Recovering/Resolving]
  - Fatigue [Not Recovered/Not Resolved]
  - Rash [Recovering/Resolving]

NARRATIVE: CASE EVENT DATE: 201310
